FAERS Safety Report 21376739 (Version 1)
Quarter: 2022Q3

REPORT INFORMATION
  Report Type: Spontaneous
  Country: US (occurrence: None)
  Receive Date: 20220924
  Receipt Date: 20220924
  Transmission Date: 20221027
  Serious: Yes (Disabling)
  Sender: FDA-Public Use
  Company Number: None

PATIENT
  Age: 30 Year
  Sex: Male
  Weight: 81 kg

DRUGS (1)
  1. LEXAPRO [Suspect]
     Active Substance: ESCITALOPRAM OXALATE

REACTIONS (6)
  - Sexual dysfunction [None]
  - Genital anaesthesia [None]
  - Anorgasmia [None]
  - Libido decreased [None]
  - Sensory loss [None]
  - Depression [None]

NARRATIVE: CASE EVENT DATE: 20211101
